FAERS Safety Report 9929127 (Version 1)
Quarter: 2014Q1

REPORT INFORMATION
  Report Type: Spontaneous
  Country: AU (occurrence: None)
  Receive Date: 20140225
  Receipt Date: 20140225
  Transmission Date: 20141002
  Serious: Yes (Hospitalization, Other)
  Sender: FDA-Public Use
  Company Number: 2013000524

PATIENT
  Age: 89 Year
  Sex: Female
  Weight: 55 kg

DRUGS (13)
  1. ACEON [Suspect]
     Indication: ESSENTIAL HYPERTENSION
     Route: 048
  2. METHYLDOPA (METHYLDOPA) [Concomitant]
  3. IRBESARTAN (IRBESARTAN) [Concomitant]
  4. DIGOXIN (DIGOXIN) [Concomitant]
  5. CARBIMAZOLE (CARBIMAZOLE) [Concomitant]
  6. WARFARIN SODIUM (WARFARIN SODIUM) [Concomitant]
  7. SLOW-K (POTASSIUM CHLORIDE) [Concomitant]
  8. FRUSEMIDE (FRUSEMIDE) [Concomitant]
  9. NITRAZEPAM (NITRAZEPAM) [Concomitant]
  10. TRIAMCINOLONE (TRIAMCINOLONE) [Concomitant]
  11. FGF (FERROUS SULFATE EXSICCATED, FOLIC ACID) [Concomitant]
  12. PROCTOSEDYL (CINCHOCAINE HYDROCHLORIDE, ESCULOSIDE, FRAMYCETIN SULFATE, HYDROCORTISONE ACETATE) [Concomitant]
  13. LOPERAMIDE HYDROCHLORIDE (LOPERAMIDE HYDROCHLORIDE) [Concomitant]

REACTIONS (5)
  - Malaise [None]
  - Thirst [None]
  - Periorbital oedema [None]
  - Angioedema [None]
  - Visual acuity reduced [None]
